FAERS Safety Report 9415212 (Version 1)
Quarter: 2013Q3

REPORT INFORMATION
  Report Type: Report from Study
  Country: US (occurrence: US)
  Receive Date: 20130723
  Receipt Date: 20130723
  Transmission Date: 20140515
  Serious: Yes (Hospitalization, Other)
  Sender: FDA-Public Use
  Company Number: PHEH2013US015353

PATIENT
  Age: 65 Year
  Sex: Female

DRUGS (1)
  1. GLEEVEC [Suspect]
     Indication: SOFT TISSUE CANCER
     Dosage: 400 MG, ONCE DAILY
     Route: 048
     Dates: start: 20100819

REACTIONS (2)
  - Gastrointestinal disorder [Not Recovered/Not Resolved]
  - Aphagia [Not Recovered/Not Resolved]
